FAERS Safety Report 8506960-1 (Version None)
Quarter: 2012Q3

REPORT INFORMATION
  Report Type: 
  Country: None (occurrence: None)
  Receive Date: 20120712
  Receipt Date: 20120705
  Transmission Date: 20120928
  Serious: Yes (Hospitalization)
  Sender: FDA-Public Use
  Company Number: FR-ELI_LILLY_AND_COMPANY-FR201207001193

PATIENT
  Sex: Male

DRUGS (3)
  1. IFOSFAMIDE [Concomitant]
     Dosage: 4000 MG, 1 WEEK EVERY 3 WEEKS
     Dates: start: 20120430
  2. GEMZAR [Suspect]
     Dosage: 1600 MG, ONE WEEK EVERY 3 WEEKS
     Route: 042
     Dates: start: 20120430
  3. NAVELBINE [Concomitant]
     Dosage: 40 MG, 1 WEEK EVERY 3 WEEKS
     Dates: start: 20120430

REACTIONS (8)
  - OXYGEN SATURATION DECREASED [None]
  - FACE OEDEMA [None]
  - PYREXIA [None]
  - TACHYCARDIA [None]
  - BLOOD PRESSURE INCREASED [None]
  - EYELID OEDEMA [None]
  - LIVEDO RETICULARIS [None]
  - CHILLS [None]
